FAERS Safety Report 19172934 (Version 1)
Quarter: 2021Q2

REPORT INFORMATION
  Report Type: Spontaneous
  Country: US (occurrence: US)
  Receive Date: 20210422
  Receipt Date: 20210422
  Transmission Date: 20210717
  Serious: Yes (Other)
  Sender: FDA-Public Use
  Company Number: None

PATIENT
  Age: 78 Year
  Sex: Female
  Weight: 75.15 kg

DRUGS (10)
  1. MULTIVITAMIN [Concomitant]
     Active Substance: VITAMINS
  2. CALTRATE [Concomitant]
     Active Substance: CALCIUM CARBONATE
  3. GABAPENTIN (GENERIC NEURONTIN) [Suspect]
     Active Substance: GABAPENTIN
     Indication: NEUROPATHY PERIPHERAL
     Dosage: ?          QUANTITY:3 CAPSULE(S);?
     Route: 048
  4. METOPROLOL. [Concomitant]
     Active Substance: METOPROLOL
  5. FEOSOL BIFERA IRON [Concomitant]
  6. FUROSEMIDE. [Concomitant]
     Active Substance: FUROSEMIDE
  7. ROSUVASTATIN. [Concomitant]
     Active Substance: ROSUVASTATIN
  8. LOPERAMIDE [Concomitant]
     Active Substance: LOPERAMIDE
  9. LANSOPRAZOLE. [Concomitant]
     Active Substance: LANSOPRAZOLE
  10. CLARITIN [Concomitant]
     Active Substance: LORATADINE

REACTIONS (3)
  - Lower limb fracture [None]
  - Fall [None]
  - Somnambulism [None]

NARRATIVE: CASE EVENT DATE: 20210412
